FAERS Safety Report 9154671 (Version 3)
Quarter: 2013Q1

REPORT INFORMATION
  Report Type: Spontaneous
  Country: JP (occurrence: JP)
  Receive Date: 20130311
  Receipt Date: 20130325
  Transmission Date: 20140127
  Serious: Yes (Hospitalization, Other)
  Sender: FDA-Public Use
  Company Number: PHHY2013JP022461

PATIENT
  Sex: Female

DRUGS (1)
  1. RITALIN [Suspect]
     Indication: DEPRESSIVE SYMPTOM
     Route: 048

REACTIONS (9)
  - Bipolar I disorder [Unknown]
  - Bipolar disorder [Unknown]
  - Self injurious behaviour [Unknown]
  - Intentional overdose [Unknown]
  - Depression [Unknown]
  - Drug dependence [Unknown]
  - Restlessness [Unknown]
  - Anxiety [Unknown]
  - Aggression [Unknown]
